FAERS Safety Report 5730172-8 (Version None)
Quarter: 2008Q2

REPORT INFORMATION
  Report Type: 
  Country: None (occurrence: None)
  Receive Date: 20080505
  Receipt Date: 20080505
  Transmission Date: 20081010
  Serious: Yes (Hospitalization)
  Sender: FDA-Public Use
  Company Number: None

PATIENT
  Age: 72 Year
  Sex: Male
  Weight: 85.09 kg

DRUGS (1)
  1. TERAZOSIN HCL [Suspect]
     Indication: BENIGN PROSTATIC HYPERPLASIA
     Dosage: 4 MG EVERY DAY PO
     Route: 048
     Dates: start: 20061108, end: 20071026

REACTIONS (7)
  - AMNESIA [None]
  - CARDIO-RESPIRATORY ARREST [None]
  - HYPOTENSION [None]
  - LOSS OF CONSCIOUSNESS [None]
  - SYNCOPE [None]
  - UNRESPONSIVE TO STIMULI [None]
  - VOMITING [None]
